FAERS Safety Report 24877242 (Version 2)
Quarter: 2025Q1

REPORT INFORMATION
  Report Type: Spontaneous
  Country: US (occurrence: US)
  Receive Date: 20250123
  Receipt Date: 20250319
  Transmission Date: 20250408
  Serious: Yes (Other)
  Sender: SUNOVION
  Company Number: US-SUNOVION-2024SUN000014

PATIENT

DRUGS (1)
  1. APTIOM [Suspect]
     Active Substance: ESLICARBAZEPINE ACETATE
     Dosage: 800 MG, BID
     Route: 048

REACTIONS (5)
  - Seizure [Recovered/Resolved]
  - Fall [Unknown]
  - Depression [Unknown]
  - Inappropriate schedule of product administration [Unknown]
  - Overdose [Unknown]
